FAERS Safety Report 9982770 (Version 1)
Quarter: 2014Q1

REPORT INFORMATION
  Report Type: Report from Study
  Country: US (occurrence: US)
  Receive Date: 20140307
  Receipt Date: 20140307
  Transmission Date: 20141002
  Serious: No
  Sender: FDA-Public Use
  Company Number: US-ABBVIE-13P-163-1181131-00

PATIENT
  Sex: Female

DRUGS (14)
  1. HUMIRA [Suspect]
     Indication: PSORIASIS
     Dates: start: 2010, end: 2011
  2. STELARA [Suspect]
     Indication: PRODUCT USED FOR UNKNOWN INDICATION
  3. VYTORIN [Concomitant]
     Indication: PRODUCT USED FOR UNKNOWN INDICATION
     Dosage: 10/40 MG
  4. IRBESARTAN [Concomitant]
     Indication: PRODUCT USED FOR UNKNOWN INDICATION
  5. VERAPAMIL ER [Concomitant]
     Indication: TACHYCARDIA
  6. VERAPAMIL ER [Concomitant]
     Indication: PROPHYLAXIS
  7. FLECAINIDE ACETATE [Concomitant]
     Indication: TACHYCARDIA
  8. FLECAINIDE ACETATE [Concomitant]
     Indication: PROPHYLAXIS
  9. COUMADIN [Concomitant]
     Indication: THROMBOSIS PROPHYLAXIS
  10. DIGOXIN [Concomitant]
     Indication: ARRHYTHMIA
  11. DIGOXIN [Concomitant]
     Indication: PROPHYLAXIS
  12. CITALOPRAM [Concomitant]
     Indication: PRODUCT USED FOR UNKNOWN INDICATION
  13. FUROSEMIDE [Concomitant]
     Indication: PRODUCT USED FOR UNKNOWN INDICATION
  14. POTASSIUM [Concomitant]
     Indication: PRODUCT USED FOR UNKNOWN INDICATION

REACTIONS (5)
  - Restless legs syndrome [Not Recovered/Not Resolved]
  - Anxiety [Not Recovered/Not Resolved]
  - Injection site pain [Unknown]
  - Fear of injection [Not Recovered/Not Resolved]
  - Drug ineffective [Not Recovered/Not Resolved]
